FAERS Safety Report 5268019-9 (Version None)
Quarter: 2007Q1

REPORT INFORMATION
  Report Type: 
  Country: None (occurrence: None)
  Receive Date: 20070319
  Receipt Date: 20070307
  Transmission Date: 20070707
  Serious: Yes (Hospitalization)
  Sender: FDA-Public Use
  Company Number: JP-SP-2007-00786

PATIENT
  Age: 74 Year
  Sex: Male

DRUGS (1)
  1. IMMUCYST [Suspect]
     Indication: BLADDER CANCER
     Route: 065

REACTIONS (4)
  - BOVINE TUBERCULOSIS [None]
  - INCORRECT DOSE ADMINISTERED [None]
  - PULMONARY TUBERCULOSIS [None]
  - TUBERCULOSIS TEST POSITIVE [None]
